FAERS Safety Report 9193113 (Version 1)
Quarter: 2013Q1

REPORT INFORMATION
  Report Type: Spontaneous
  Country: US (occurrence: US)
  Receive Date: 20130327
  Receipt Date: 20130327
  Transmission Date: 20140127
  Serious: Yes (Other)
  Sender: FDA-Public Use
  Company Number: US-JNJCP-30000153319

PATIENT
  Sex: Female

DRUGS (7)
  1. NEUTROGENA AGE SHIELD FACE SPF 70 [Suspect]
     Indication: PROPHYLAXIS
     Route: 061
  2. NO DRUG NAME [Concomitant]
  3. NO DRUG NAME [Concomitant]
  4. NO DRUG NAME [Concomitant]
  5. NO DRUG NAME [Concomitant]
  6. NO DRUG NAME [Concomitant]
  7. NO DRUG NAME [Concomitant]

REACTIONS (1)
  - Furuncle [Recovered/Resolved]
